FAERS Safety Report 5923568-2 (Version None)
Quarter: 2008Q4

REPORT INFORMATION
  Report Type: 
  Country: None (occurrence: None)
  Receive Date: 20081020
  Receipt Date: 20081013
  Transmission Date: 20090506
  Serious: Yes (Other)
  Sender: FDA-Public Use
  Company Number: PHHY2008NO24547

PATIENT
  Age: 35 Year
  Sex: Female

DRUGS (1)
  1. LAMISIL [Suspect]

REACTIONS (2)
  - BLISTER [None]
  - CONDITION AGGRAVATED [None]
